FAERS Safety Report 11526882 (Version 1)
Quarter: 2015Q3

REPORT INFORMATION
  Report Type: Spontaneous
  Country: US (occurrence: US)
  Receive Date: 20150903
  Receipt Date: 20150903
  Transmission Date: 20151125
  Serious: No
  Sender: FDA-Public Use
  Company Number: US-ELI_LILLY_AND_COMPANY-US201407006552

PATIENT
  Sex: Female

DRUGS (1)
  1. CYMBALTA [Suspect]
     Active Substance: DULOXETINE HYDROCHLORIDE
     Indication: CLOSTRIDIUM DIFFICILE INFECTION
     Dates: start: 200906, end: 201406

REACTIONS (10)
  - Drug withdrawal syndrome [Unknown]
  - Diarrhoea [Unknown]
  - Micturition urgency [Unknown]
  - Pollakiuria [Unknown]
  - Insomnia [Unknown]
  - Pain [Unknown]
  - Product use issue [Unknown]
  - Dysuria [Recovered/Resolved]
  - Feeling hot [Unknown]
  - Irritability [Unknown]
